FAERS Safety Report 22659294 (Version 1)
Quarter: 2023Q2

REPORT INFORMATION
  Report Type: Spontaneous
  Country: US (occurrence: US)
  Receive Date: 20230630
  Receipt Date: 20230630
  Transmission Date: 20230722
  Serious: Yes (Other)
  Sender: FDA-Public Use
  Company Number: US-002147023-NVSC2023US148305

PATIENT
  Age: 73 Year
  Sex: Female

DRUGS (1)
  1. MINOCYCLINE [Suspect]
     Active Substance: MINOCYCLINE HYDROCHLORIDE
     Indication: Punctate keratitis
     Dosage: UNK
     Route: 065

REACTIONS (2)
  - Eosinophilic myocarditis [Recovered/Resolved]
  - Product use in unapproved indication [Unknown]
